FAERS Safety Report 7987440-9 (Version None)
Quarter: 2011Q4

REPORT INFORMATION
  Report Type: 
  Country: None (occurrence: None)
  Receive Date: 20111216
  Receipt Date: 20110422
  Transmission Date: 20120403
  Serious: Yes (Other)
  Sender: FDA-Public Use
  Company Number: US-BRISTOL-MYERS SQUIBB COMPANY-15665755

PATIENT
  Age: 20 Year
  Sex: Male

DRUGS (4)
  1. ABILIFY [Suspect]
     Indication: MANIA
     Dosage: ONE YEAR AGO
     Route: 048
  2. NEURONTIN [Concomitant]
  3. ABILIFY [Suspect]
     Indication: BIPOLAR DISORDER
     Dosage: ONE YEAR AGO
     Route: 048
  4. ABILIFY [Suspect]
     Indication: PSYCHOTIC DISORDER
     Dosage: ONE YEAR AGO
     Route: 048

REACTIONS (2)
  - BLOOD CREATINE PHOSPHOKINASE INCREASED [None]
  - WHITE BLOOD CELL COUNT DECREASED [None]
